FAERS Safety Report 8443234-1 (Version None)
Quarter: 2012Q2

REPORT INFORMATION
  Report Type: 
  Country: None (occurrence: None)
  Receive Date: 20120617
  Receipt Date: 20120606
  Transmission Date: 20120825
  Serious: Yes (Other)
  Sender: FDA-Public Use
  Company Number: JP-VERTEX PHARMACEUTICALS INC.-AE-2012-008631

PATIENT
  Age: 54 Year
  Sex: Male

DRUGS (8)
  1. TELAVIC (TELAPREVIR) [Suspect]
     Route: 048
     Dates: start: 20120510, end: 20120523
  2. PEGINTERFERON ALFA-2B [Concomitant]
  3. URSO 250 [Concomitant]
     Route: 048
     Dates: start: 20120302, end: 20120304
  4. RIBAVIRIN [Concomitant]
     Route: 048
     Dates: start: 20120419, end: 20120502
  5. PEGINTERFERON ALFA-2B [Concomitant]
     Route: 051
     Dates: start: 20120307, end: 20120516
  6. TELAVIC (TELAPREVIR) [Suspect]
     Indication: HEPATITIS C
     Route: 048
     Dates: start: 20120307, end: 20120509
  7. RIBAVIRIN [Concomitant]
     Route: 048
     Dates: start: 20120307, end: 20120418
  8. RIBAVIRIN [Concomitant]
     Route: 048
     Dates: start: 20120503, end: 20120523

REACTIONS (2)
  - RASH [None]
  - OEDEMA [None]
